FAERS Safety Report 12653573 (Version 1)
Quarter: 2016Q3

REPORT INFORMATION
  Report Type: Spontaneous
  Country: CA (occurrence: CA)
  Receive Date: 20160815
  Receipt Date: 20160815
  Transmission Date: 20161109
  Serious: Yes (Other)
  Sender: FDA-Public Use
  Company Number: CA-ALLERGAN-1665266US

PATIENT
  Age: 50 Year
  Sex: Female

DRUGS (2)
  1. FIBRISTAL [Suspect]
     Active Substance: ULIPRISTAL
     Indication: UTERINE LEIOMYOMA
     Route: 048
  2. MIRENA [Concomitant]
     Active Substance: LEVONORGESTREL
     Indication: MENORRHAGIA

REACTIONS (1)
  - Endometrial cancer [Unknown]
